FAERS Safety Report 6475487-3 (Version None)
Quarter: 2009Q4

REPORT INFORMATION
  Report Type: 
  Country: None (occurrence: None)
  Receive Date: 20091204
  Receipt Date: 20091125
  Transmission Date: 20100525
  Serious: Yes (Other)
  Sender: FDA-Public Use
  Company Number: PHHY2009IL51962

PATIENT
  Age: 52 Year
  Sex: Male

DRUGS (7)
  1. GLEEVEC [Suspect]
     Indication: CHRONIC MYELOID LEUKAEMIA
     Dosage: 400 MG/DAY
     Route: 048
  2. GLEEVEC [Suspect]
     Dosage: 200 MG/DAY
     Route: 048
  3. INSULIN [Concomitant]
  4. ATORVASTATIN [Concomitant]
  5. ESCITALOPRAM [Concomitant]
  6. REPAGLINIDE [Concomitant]
  7. CAPTOPRIL [Concomitant]

REACTIONS (3)
  - ASTHENIA [None]
  - BONE MARROW NECROSIS [None]
  - HEADACHE [None]
